FAERS Safety Report 5097767-9 (Version None)
Quarter: 2006Q3

REPORT INFORMATION
  Report Type: 
  Country: None (occurrence: None)
  Receive Date: 20060901
  Receipt Date: 20060824
  Transmission Date: 20061208
  Serious: Yes (Other)
  Sender: FDA-Public Use
  Company Number: 227718

PATIENT
  Sex: Female

DRUGS (9)
  1. MABTHERA (RITUXIMAB) CONC FOR SOLUTION FOR INFUSION [Suspect]
     Indication: RHEUMATOID ARTHRITIS
     Dosage: 1250 MG, INTRAVENOUS
     Route: 042
     Dates: start: 20051201
  2. PREMARIN [Suspect]
     Indication: DRUG USE FOR UNKNOWN INDICATION
     Dosage: 0.062 MG, ORAL
     Route: 048
  3. PREDNISONE TAB [Concomitant]
  4. METHOTREXATE [Concomitant]
  5. SULFASALAZINE [Concomitant]
  6. HYDROXYCHLOROQUINE (HYDROCHLOROQUINE SULFATE) [Concomitant]
  7. PLAVIX [Concomitant]
  8. OMEPRAZOLE [Concomitant]
  9. LIPITOR [Concomitant]

REACTIONS (3)
  - BREAST CANCER FEMALE [None]
  - CONDITION AGGRAVATED [None]
  - RHEUMATOID ARTHRITIS [None]
